FAERS Safety Report 16055814 (Version 1)
Quarter: 2019Q1

REPORT INFORMATION
  Report Type: Report from Study
  Country: None (occurrence: US)
  Receive Date: 20190311
  Receipt Date: 20190311
  Transmission Date: 20190418
  Serious: Yes (Other)
  Sender: FDA-Public Use
  Company Number: US-ABBVIE-18K-163-2366208-00

PATIENT
  Age: 35 Year
  Sex: Female

DRUGS (15)
  1. NORCO [Concomitant]
     Active Substance: ACETAMINOPHEN\HYDROCODONE BITARTRATE
     Indication: DYSPLASIA
  2. VITAMIN B12 [Concomitant]
     Active Substance: CYANOCOBALAMIN
     Indication: PRODUCT USED FOR UNKNOWN INDICATION
  3. TYLENOL [Concomitant]
     Active Substance: ACETAMINOPHEN
     Indication: PRODUCT USED FOR UNKNOWN INDICATION
  4. GRALISE [Concomitant]
     Active Substance: GABAPENTIN
     Indication: PRODUCT USED FOR UNKNOWN INDICATION
  5. HUMIRA [Suspect]
     Active Substance: ADALIMUMAB
     Route: 058
  6. MELATONIN [Concomitant]
     Active Substance: MELATONIN
     Indication: PRODUCT USED FOR UNKNOWN INDICATION
  7. NIFEDIPINE. [Concomitant]
     Active Substance: NIFEDIPINE
     Indication: PRODUCT USED FOR UNKNOWN INDICATION
  8. METHOCARBAMOL. [Concomitant]
     Active Substance: METHOCARBAMOL
     Indication: PRODUCT USED FOR UNKNOWN INDICATION
  9. HUMIRA [Suspect]
     Active Substance: ADALIMUMAB
     Indication: RHEUMATOID ARTHRITIS
     Route: 058
     Dates: start: 2016
  10. HUMIRA [Suspect]
     Active Substance: ADALIMUMAB
     Route: 058
  11. DUEXIS [Concomitant]
     Active Substance: FAMOTIDINE\IBUPROFEN
     Indication: PRODUCT USED FOR UNKNOWN INDICATION
  12. AMITRIPTYLINE [Concomitant]
     Active Substance: AMITRIPTYLINE
     Indication: PRODUCT USED FOR UNKNOWN INDICATION
  13. OMEPRAZOLE. [Concomitant]
     Active Substance: OMEPRAZOLE
     Indication: PRODUCT USED FOR UNKNOWN INDICATION
  14. DIAZEPAM. [Concomitant]
     Active Substance: DIAZEPAM
     Indication: PRODUCT USED FOR UNKNOWN INDICATION
  15. PREDNISONE. [Concomitant]
     Active Substance: PREDNISONE
     Indication: PRODUCT USED FOR UNKNOWN INDICATION

REACTIONS (28)
  - Gait disturbance [Unknown]
  - Insomnia [Unknown]
  - Injection site bruising [Unknown]
  - Back injury [Unknown]
  - Peripheral coldness [Unknown]
  - Cerebrospinal fluid leakage [Unknown]
  - Weight increased [Unknown]
  - Depression [Unknown]
  - Accident at work [Unknown]
  - Arachnoiditis [Not Recovered/Not Resolved]
  - Paraesthesia [Not Recovered/Not Resolved]
  - Spinal osteoarthritis [Unknown]
  - Fatigue [Unknown]
  - Dysplasia [Not Recovered/Not Resolved]
  - Neuralgia [Unknown]
  - Arthralgia [Unknown]
  - Dysuria [Unknown]
  - Inflammation [Unknown]
  - Injection site pain [Unknown]
  - Spinal operation [Unknown]
  - Feeling hot [Unknown]
  - Burning sensation [Not Recovered/Not Resolved]
  - Stress [Unknown]
  - Pain [Not Recovered/Not Resolved]
  - Device issue [Unknown]
  - Intervertebral disc protrusion [Unknown]
  - Plantar fasciitis [Unknown]
  - Muscle spasms [Unknown]

NARRATIVE: CASE EVENT DATE: 2016
